FAERS Safety Report 4449153-X (Version None)
Quarter: 2004Q3

REPORT INFORMATION
  Report Type: 
  Country: None (occurrence: None)
  Receive Date: 20040910
  Receipt Date: 20040827
  Transmission Date: 20050211
  Serious: Yes (Death)
  Sender: FDA-Public Use
  Company Number: S04-SWI-04029-01

PATIENT
  Age: 34 Year
  Sex: Female

DRUGS (5)
  1. CITALOPRAM HYDROBROMIDE [Suspect]
     Dosage: 200 MG ONCE PO
     Route: 048
     Dates: start: 20040121, end: 20040121
  2. AURORIX (MOCLOBEMIDE) [Suspect]
     Dosage: 10 TABLET ONCE PO
     Route: 048
     Dates: start: 20040121, end: 20040121
  3. TRAMADOL HCL [Suspect]
     Dosage: 50 MG ONCE PO
     Route: 048
     Dates: start: 20040121, end: 20040121
  4. COCAINE [Concomitant]
  5. HEROIN [Concomitant]

REACTIONS (10)
  - COMA [None]
  - COMPLETED SUICIDE [None]
  - DIAPHRAGMATIC PARALYSIS [None]
  - DRUG ABUSER [None]
  - DRUG TOXICITY [None]
  - ELECTROMECHANICAL DISSOCIATION [None]
  - MULTIPLE DRUG OVERDOSE INTENTIONAL [None]
  - NARCOTIC INTOXICATION [None]
  - SEROTONIN SYNDROME [None]
  - VENTRICULAR TACHYCARDIA [None]
